FAERS Safety Report 9841870 (Version 1)
Quarter: 2013Q4

REPORT INFORMATION
  Report Type: Spontaneous
  Country: US (occurrence: None)
  Receive Date: 20131211
  Receipt Date: 20131211
  Transmission Date: 20140711
  Serious: Yes (Life-Threatening, Hospitalization)
  Sender: FDA-Public Use
  Company Number: TKT01200600161

PATIENT
  Age: 25 Year
  Sex: Male
  Weight: 43.4 kg

DRUGS (1)
  1. IDURSULFASE (IDURSULFASE) (0.5 MILLIGRAM(S)/KILOGRAM, CONCENTRATE [Suspect]
     Indication: MUCOPOLYSACCHARIDOSIS II
     Route: 041
     Dates: start: 20010628, end: 20061018

REACTIONS (4)
  - Obstructive airways disorder [None]
  - Hypoxia [None]
  - Respiratory disorder [None]
  - Infusion related reaction [None]
